FAERS Safety Report 23789284 (Version 2)
Quarter: 2024Q2

REPORT INFORMATION
  Report Type: Spontaneous
  Country: US (occurrence: US)
  Receive Date: 20240426
  Receipt Date: 20240531
  Transmission Date: 20240716
  Serious: Yes (Death, Hospitalization)
  Sender: FDA-Public Use
  Company Number: US-DSJP-DSU-2024-118679

PATIENT
  Age: 7 Decade
  Sex: Female

DRUGS (1)
  1. ENHERTU [Suspect]
     Active Substance: FAM-TRASTUZUMAB DERUXTECAN-NXKI
     Indication: Breast cancer metastatic
     Dosage: 5.4 MG/KG, ONCE EVERY 3 WK
     Route: 042

REACTIONS (5)
  - Pneumonitis [Fatal]
  - Bipolar disorder [Unknown]
  - Mental disorder [Unknown]
  - Treatment noncompliance [Unknown]
  - Product dose omission issue [Unknown]

NARRATIVE: CASE EVENT DATE: 20240101
